FAERS Safety Report 14337697 (Version 24)
Quarter: 2020Q3

REPORT INFORMATION
  Report Type: Spontaneous
  Country: CA (occurrence: CA)
  Receive Date: 20171229
  Receipt Date: 20200921
  Transmission Date: 20201102
  Serious: Yes (Death, Life-Threatening, Hospitalization, Disabling, Other)
  Sender: FDA-Public Use
  Company Number: CA-PFIZER INC-2017553277

PATIENT
  Age: 61 Year
  Sex: Female
  Weight: 67 kg

DRUGS (59)
  1. AMIODARONE HCL [Suspect]
     Active Substance: AMIODARONE HYDROCHLORIDE
     Dosage: UNK
  2. MORPHINE HYDROCHLORIDE [Suspect]
     Active Substance: MORPHINE HYDROCHLORIDE
     Dosage: UNK
     Route: 042
     Dates: start: 2017
  3. METOCLOPRAMIDE. [Concomitant]
     Active Substance: METOCLOPRAMIDE
     Dosage: 10 MG, 4X/DAY (Q6HR)
     Route: 048
     Dates: start: 20161215
  4. ONDANSETRON [Concomitant]
     Active Substance: ONDANSETRON
     Dosage: UNK
  5. CEFTRIAXONE SODIUM. [Suspect]
     Active Substance: CEFTRIAXONE SODIUM
     Dosage: 1 G, 1X/DAY (QD)
     Route: 042
     Dates: start: 2017, end: 2017
  6. DOXORUBICIN HCL [Suspect]
     Active Substance: DOXORUBICIN HYDROCHLORIDE
     Indication: BREAST CANCER
     Dosage: 106 MG, CYCLIC (Q2WEEKS (ONCE EVERY 14 DAYS); 1 EVERY 2 WEEK(S))
     Route: 042
     Dates: start: 2017, end: 2017
  7. DOXORUBICIN HCL [Suspect]
     Active Substance: DOXORUBICIN HYDROCHLORIDE
     Dosage: 106 MG, UNK
     Route: 042
  8. PACLITAXEL. [Suspect]
     Active Substance: PACLITAXEL
     Dosage: 297 MG, UNK
     Route: 042
  9. METOPROLOL. [Suspect]
     Active Substance: METOPROLOL
     Dosage: 5 MG, 4X/DAY (EVERY 6 HOURS)
     Route: 042
     Dates: start: 20170318
  10. GABAPENTIN. [Concomitant]
     Active Substance: GABAPENTIN
     Dosage: UNK
  11. ACETAMINOPHEN?CAFFEINE?CODEINE [Concomitant]
     Dosage: UNK
  12. CEFTRIAXONE SODIUM. [Suspect]
     Active Substance: CEFTRIAXONE SODIUM
     Dosage: 1 G, 1X/DAY
     Route: 042
  13. CEFTRIAXONE SODIUM. [Suspect]
     Active Substance: CEFTRIAXONE SODIUM
     Dosage: 1 G, EVERY 4 HRS
     Route: 042
     Dates: start: 2017, end: 2017
  14. DIGOXIN. [Suspect]
     Active Substance: DIGOXIN
     Dosage: 0.25 MG (ONE EVERY FOUR HOURS)
     Route: 042
     Dates: start: 2017, end: 2017
  15. PROCYTOX [Suspect]
     Active Substance: CYCLOPHOSPHAMIDE
     Dosage: 1060 MG, Q2WEEKS (ONCE EVERY 14 DAYS)
     Route: 042
  16. PROCYTOX [Suspect]
     Active Substance: CYCLOPHOSPHAMIDE
     Dosage: 1060 MG, Q2WEEKS (ONCE EVERY 14 DAYS)
     Route: 042
     Dates: start: 2017, end: 2017
  17. GABAPENTIN. [Concomitant]
     Active Substance: GABAPENTIN
     Dosage: 100 MG, 3X/DAY (TID)
     Route: 048
  18. AZITHROMYCIN ANHYDROUS. [Suspect]
     Active Substance: AZITHROMYCIN ANHYDROUS
     Dosage: 500 MG, 1X/DAY (QD)
     Route: 042
     Dates: start: 2017, end: 2017
  19. AZITHROMYCIN ANHYDROUS. [Suspect]
     Active Substance: AZITHROMYCIN ANHYDROUS
     Dosage: 500 MG, 1X/DAY
     Route: 042
  20. HYDROMORPHONE HYDROCHLORIDE. [Suspect]
     Active Substance: HYDROMORPHONE HYDROCHLORIDE
     Dosage: UNK
     Route: 042
  21. PACLITAXEL. [Suspect]
     Active Substance: PACLITAXEL
     Indication: BREAST CANCER
     Dosage: 297 MG, Q2WEEKS (ONCE EVERY 14 DAYS) (1 EVERY 2 WEEK(S))
     Route: 042
     Dates: start: 2017, end: 2017
  22. FUROSEMIDE. [Suspect]
     Active Substance: FUROSEMIDE
     Indication: BREAST CANCER
     Dosage: 40 MG, 1X/DAY (QD)
     Route: 048
     Dates: start: 2017, end: 2017
  23. DIMENHYDRINATE. [Suspect]
     Active Substance: DIMENHYDRINATE
     Dosage: 50 MILLIGRAM, Q4HR
     Route: 042
     Dates: start: 2017, end: 2017
  24. DIGOXIN. [Suspect]
     Active Substance: DIGOXIN
     Dosage: 0.25 MG, UNK
     Route: 042
  25. HYDRALAZINE [Suspect]
     Active Substance: HYDRALAZINE HYDROCHLORIDE
     Dosage: 10 MG, EVERY FOUR HOURS (6 EVERY 1 DAYS)
     Route: 042
     Dates: start: 20170318
  26. PROCYTOX [Suspect]
     Active Substance: CYCLOPHOSPHAMIDE
     Indication: BREAST CANCER
     Dosage: 1060 MG, Q2WEEKS (ONCE EVERY 14 DAYS) (1 EVERY 2 WEEK(S))
     Route: 042
  27. FILGRASTIM [Concomitant]
     Active Substance: FILGRASTIM
     Indication: SUPPORTIVE CARE
     Dosage: 300 UG, 1X/DAY (QD)
     Route: 058
  28. ONDANSETRON [Concomitant]
     Active Substance: ONDANSETRON
     Indication: SUPPORTIVE CARE
     Dosage: 8 G, 2X/DAY (BID)
     Route: 048
  29. APREPITANT. [Concomitant]
     Active Substance: APREPITANT
     Indication: SUPPORTIVE CARE
     Dosage: 125 MG, UNK
     Route: 048
  30. AMIODARONE HCL [Suspect]
     Active Substance: AMIODARONE HYDROCHLORIDE
     Dosage: UNK
     Dates: start: 2017, end: 2017
  31. DOXORUBICIN HCL [Suspect]
     Active Substance: DOXORUBICIN HYDROCHLORIDE
     Dosage: UNK
  32. METHYLPREDNISOLONE SODIUM SUCCINATE. [Suspect]
     Active Substance: METHYLPREDNISOLONE SODIUM SUCCINATE
     Dosage: 125 MG, 4X/DAY
     Route: 042
  33. PANTOPRAZOLE [Suspect]
     Active Substance: PANTOPRAZOLE
     Dosage: 8 MG, ONCE EVERY HOUR
     Route: 042
     Dates: start: 20170318
  34. PANTOPRAZOLE [Suspect]
     Active Substance: PANTOPRAZOLE
     Dosage: 8 MG, UNK (Q1HR)
     Route: 042
  35. DIGOXIN. [Suspect]
     Active Substance: DIGOXIN
     Dosage: 10 MG, UNK
     Route: 042
  36. ENOXAPARIN [Suspect]
     Active Substance: ENOXAPARIN
     Dosage: 40 MG, 1X/DAY (QD)
     Route: 058
     Dates: start: 2017, end: 2017
  37. PROCYTOX [Suspect]
     Active Substance: CYCLOPHOSPHAMIDE
     Route: 042
  38. CYCLOPHOSPHAMIDE. [Suspect]
     Active Substance: CYCLOPHOSPHAMIDE
     Indication: BREAST CANCER
     Dosage: 1060 MG, CYCLIC (1 EVERY 2 WEEK(S))
     Route: 042
     Dates: start: 2017
  39. APREPITANT. [Concomitant]
     Active Substance: APREPITANT
     Dosage: UNK
  40. HYDROMORPHONE HYDROCHLORIDE. [Suspect]
     Active Substance: HYDROMORPHONE HYDROCHLORIDE
     Dosage: UNK
     Route: 042
  41. METHYLPREDNISOLONE SODIUM SUCCINATE. [Suspect]
     Active Substance: METHYLPREDNISOLONE SODIUM SUCCINATE
     Dosage: 125 MG, 4X/DAY (EVERY 6 HOURS)
     Route: 042
     Dates: start: 2017, end: 2017
  42. DIGOXIN. [Suspect]
     Active Substance: DIGOXIN
     Dosage: 10 MG, (1 EVERY 1 HOUR (S))
     Route: 042
     Dates: start: 2017, end: 2017
  43. DILTIAZEM CD [Suspect]
     Active Substance: DILTIAZEM
     Dosage: 180 MG, UNK
     Route: 048
     Dates: start: 2017, end: 2017
  44. PROCYTOX [Suspect]
     Active Substance: CYCLOPHOSPHAMIDE
     Dosage: 1060 MG, 1X/DAY
     Route: 042
  45. CYCLOPHOSPHAMIDE. [Suspect]
     Active Substance: CYCLOPHOSPHAMIDE
     Dosage: 1060 MG, CYCLIC (1 EVERY 2 WEEK(S))
     Route: 042
     Dates: start: 2017, end: 2017
  46. METOCLOPRAMIDE. [Concomitant]
     Active Substance: METOCLOPRAMIDE
     Dosage: 10.0 MG, UNK
  47. TRASTUZUMAB. [Suspect]
     Active Substance: TRASTUZUMAB
     Indication: BREAST CANCER
     Dosage: UNK
     Route: 065
     Dates: start: 2017
  48. DIMENHYDRINATE. [Suspect]
     Active Substance: DIMENHYDRINATE
     Dosage: 50 MG, EVERY 4 HRS
     Route: 042
     Dates: start: 2017, end: 2017
  49. HYDRALAZINE [Suspect]
     Active Substance: HYDRALAZINE HYDROCHLORIDE
     Dosage: 10 MG, 4X/DAY (1 EVERY 6 HOUR(S))
     Route: 042
  50. METOPROLOL. [Suspect]
     Active Substance: METOPROLOL
     Dosage: 2.5 MG, 4X/DAY (EVERY 6 HOURS)
     Route: 042
     Dates: start: 20170318
  51. CYCLOPHOSPHAMIDE. [Suspect]
     Active Substance: CYCLOPHOSPHAMIDE
     Dosage: 1060 MG, CYCLIC (1 EVERY 2 WEEK(S))
     Route: 042
  52. FILGRASTIM [Concomitant]
     Active Substance: FILGRASTIM
     Dosage: UNK
  53. HYDROMORPHONE HYDROCHLORIDE. [Suspect]
     Active Substance: HYDROMORPHONE HYDROCHLORIDE
     Dosage: 0.25?0.5 MG (ONCE IN 4 TO 6 HRS PRN)
     Route: 042
     Dates: start: 2017, end: 2017
  54. MORPHINE SULFATE. [Suspect]
     Active Substance: MORPHINE SULFATE
     Dosage: UNK
     Route: 042
  55. FUROSEMIDE. [Suspect]
     Active Substance: FUROSEMIDE
     Dosage: 40 MG, 1X/DAY (QD)
     Route: 048
  56. DILTIAZEM CD [Suspect]
     Active Substance: DILTIAZEM
     Dosage: 180 MG, UNK
     Route: 048
  57. ENOXAPARIN [Suspect]
     Active Substance: ENOXAPARIN
     Dosage: 40 MG, 1X/DAY (QD)
     Route: 058
  58. DEXAMETHASONE. [Concomitant]
     Active Substance: DEXAMETHASONE
     Indication: SUPPORTIVE CARE
     Dosage: 20 MG, 1X/DAY (QD)
     Route: 048
  59. DEXAMETHASONE. [Concomitant]
     Active Substance: DEXAMETHASONE
     Dosage: UNK

REACTIONS (3)
  - Atrial fibrillation [Fatal]
  - Alveolitis [Fatal]
  - Hypoxia [Fatal]

NARRATIVE: CASE EVENT DATE: 2017
